FAERS Safety Report 7757132-X (Version None)
Quarter: 2011Q3

REPORT INFORMATION
  Report Type: 
  Country: None (occurrence: None)
  Receive Date: 20110916
  Receipt Date: 20110908
  Transmission Date: 20111222
  Serious: Yes (Hospitalization)
  Sender: FDA-Public Use
  Company Number: US-JNJFOC-20101004305

PATIENT
  Sex: Male
  Weight: 12.5 kg

DRUGS (9)
  1. STEROIDS NOS [Concomitant]
     Route: 048
  2. PREVACID [Concomitant]
  3. INFLIXIMAB, RECOMBINANT [Suspect]
     Route: 042
     Dates: start: 20100901
  4. FLAGYL [Concomitant]
  5. INFLIXIMAB, RECOMBINANT [Suspect]
     Indication: CROHN'S DISEASE
     Route: 042
     Dates: start: 20091111
  6. INFLIXIMAB, RECOMBINANT [Suspect]
     Route: 042
     Dates: start: 20101014
  7. ACETAMINOPHEN [Concomitant]
  8. INFLIXIMAB, RECOMBINANT [Suspect]
     Route: 042
     Dates: start: 20101122
  9. INFLIXIMAB, RECOMBINANT [Suspect]
     Route: 042
     Dates: start: 20110301

REACTIONS (7)
  - GASTRITIS [None]
  - CROHN'S DISEASE [None]
  - HYPOPHAGIA [None]
  - DISEASE PROGRESSION [None]
  - DEHYDRATION [None]
  - COLITIS [None]
  - BLOOD SODIUM DECREASED [None]
